FAERS Safety Report 6862675-7 (Version None)
Quarter: 2010Q3

REPORT INFORMATION
  Report Type: 
  Country: None (occurrence: None)
  Receive Date: 20100721
  Receipt Date: 20100712
  Transmission Date: 20110219
  Serious: Yes (Other)
  Sender: FDA-Public Use
  Company Number: US-ROCHE-695414

PATIENT
  Sex: Female
  Weight: 63 kg

DRUGS (8)
  1. BONIVA [Suspect]
     Indication: OSTEOPENIA
     Route: 048
     Dates: start: 20091027, end: 20100302
  2. CALCIUM [Concomitant]
  3. COD LIVER OIL [Concomitant]
     Indication: OSTEOPENIA
     Dosage: DOSE: 2 TB/SP, FREQUENCY: DAILY
     Route: 048
     Dates: start: 20090601
  4. PROGESTERONE [Concomitant]
  5. TESTOSTERONE [Concomitant]
  6. MAGNESIUM [Concomitant]
  7. MOBIC [Concomitant]
     Indication: ARTHRITIS
     Dosage: FREQUENCY: DAILY
     Route: 048
     Dates: start: 20080922, end: 20100215
  8. CALCIUM/VITAMIN D3 [Concomitant]
     Indication: OSTEOPENIA
     Dosage: FREQUENCY: 3-4X/WEEK, DOSE: 600 MG CALCIUM AND 800 IU D3, DRUG REPORTED AS: GNC BE BALANCED
     Route: 048
     Dates: start: 20100201

REACTIONS (5)
  - CONSTIPATION [None]
  - EYE HAEMORRHAGE [None]
  - MUSCLE TIGHTNESS [None]
  - PAIN IN JAW [None]
  - VITREOUS FLOATERS [None]
